FAERS Safety Report 6711900-1 (Version None)
Quarter: 2010Q2

REPORT INFORMATION
  Report Type: 
  Country: None (occurrence: None)
  Receive Date: 20100505
  Receipt Date: 20100423
  Transmission Date: 20101027
  Serious: Yes (Other)
  Sender: FDA-Public Use
  Company Number: JP-MERCK-1004USA04428

PATIENT
  Age: 66 Year
  Sex: Male

DRUGS (6)
  1. PEPCID [Suspect]
     Route: 048
  2. CINACALCET [Suspect]
     Route: 065
     Dates: start: 20090116, end: 20090119
  3. ALFACALCIDOL [Concomitant]
     Indication: SECONDARY HYPERTHYROIDISM
     Route: 048
  4. STRONGER NEO-MINOPHAGEN C [Concomitant]
     Indication: ALCOHOLIC LIVER DISEASE
     Route: 065
  5. SEVELAMER HYDROCHLORIDE [Concomitant]
     Route: 065
  6. CALCIUM CARBONATE [Concomitant]
     Route: 065

REACTIONS (1)
  - LIVER DISORDER [None]
